FAERS Safety Report 17818288 (Version 1)
Quarter: 2020Q2

REPORT INFORMATION
  Report Type: Spontaneous
  Country: US (occurrence: US)
  Receive Date: 20200522
  Receipt Date: 20200522
  Transmission Date: 20200714
  Serious: Yes (Death, Other)
  Sender: FDA-Public Use
  Company Number: US-PURDUE PHARMA-USA-2020-0152846

PATIENT
  Sex: Male

DRUGS (3)
  1. HYDROCODONE BITARTRATE AND ACETAMINOPHEN [Suspect]
     Active Substance: ACETAMINOPHEN\HYDROCODONE BITARTRATE
     Indication: ARTHRALGIA
     Route: 048
  2. DILAUDID [Suspect]
     Active Substance: HYDROMORPHONE HYDROCHLORIDE
     Indication: ARTHRALGIA
     Route: 048
  3. OXYCONTIN [Suspect]
     Active Substance: OXYCODONE HYDROCHLORIDE
     Indication: ARTHRALGIA
     Route: 048

REACTIONS (2)
  - Completed suicide [Fatal]
  - Drug dependence [Unknown]
